FAERS Safety Report 8538426-7 (Version None)
Quarter: 2012Q3

REPORT INFORMATION
  Report Type: 
  Country: None (occurrence: None)
  Receive Date: 20120712
  Receipt Date: 20120629
  Transmission Date: 20120928
  Serious: Yes (Other)
  Sender: FDA-Public Use
  Company Number: FK201201835

PATIENT
  Age: 44 Year
  Sex: Female

DRUGS (1)
  1. OXALIPLATIN [Suspect]
     Indication: COLON CANCER

REACTIONS (6)
  - HYPOTENSION [None]
  - DIZZINESS [None]
  - SYNCOPE [None]
  - LONG QT SYNDROME [None]
  - BRADYCARDIA [None]
  - PALPITATIONS [None]
